FAERS Safety Report 19417639 (Version 2)
Quarter: 2021Q2

REPORT INFORMATION
  Report Type: Spontaneous
  Country: US (occurrence: US)
  Receive Date: 20210615
  Receipt Date: 20210622
  Transmission Date: 20210717
  Serious: No
  Sender: FDA-Public Use
  Company Number: US-BRISTOL-MYERS SQUIBB COMPANY-BMS-2021-056281

PATIENT
  Age: 45 Year
  Sex: Female

DRUGS (1)
  1. SPRYCEL [Suspect]
     Active Substance: DASATINIB
     Indication: CHRONIC MYELOID LEUKAEMIA
     Dosage: 80 MILLIGRAM, QD
     Route: 048
     Dates: start: 20200805

REACTIONS (7)
  - Dyspnoea [Unknown]
  - Diarrhoea [Unknown]
  - White blood cell count increased [Unknown]
  - Malaise [Unknown]
  - Eye swelling [Unknown]
  - Mental status changes [Unknown]
  - Joint swelling [Unknown]
